FAERS Safety Report 5420946-5 (Version None)
Quarter: 2007Q3

REPORT INFORMATION
  Report Type: 
  Country: None (occurrence: None)
  Receive Date: 20070817
  Receipt Date: 20070817
  Transmission Date: 20080115
  Serious: Yes (Hospitalization)
  Sender: FDA-Public Use
  Company Number: None

PATIENT
  Age: 79 Year
  Sex: Male

DRUGS (3)
  1. OXYBUTYNIN CHLORIDE [Suspect]
     Indication: ANXIETY
     Dosage: 5MG TID PO
     Route: 048
     Dates: start: 20030219, end: 20070813
  2. OXYBUTYNIN CHLORIDE [Suspect]
     Indication: BLADDER SPASM
     Dosage: 5MG TID PO
     Route: 048
     Dates: start: 20030219, end: 20070813
  3. CHLORDIAZEPOXIDE [Suspect]
     Dosage: 10MG BID PO
     Route: 048
     Dates: start: 19951119, end: 20070813

REACTIONS (1)
  - SYNCOPE [None]
